FAERS Safety Report 6969545-4 (Version None)
Quarter: 2010Q3

REPORT INFORMATION
  Report Type: 
  Country: None (occurrence: None)
  Receive Date: 20100907
  Receipt Date: 20100907
  Transmission Date: 20110219
  Serious: No
  Sender: FDA-Public Use
  Company Number: None

PATIENT
  Age: 31 Year
  Sex: Female
  Weight: 89.8122 kg

DRUGS (1)
  1. NATAZIA [Suspect]
     Indication: MENSTRUATION IRREGULAR
     Dosage: 1 PILL 1 TIME PER DAY PO
     Route: 048
     Dates: start: 20100811, end: 20100902

REACTIONS (2)
  - MIGRAINE [None]
  - PREMENSTRUAL SYNDROME [None]
